FAERS Safety Report 5895047-2 (Version None)
Quarter: 2008Q3

REPORT INFORMATION
  Report Type: 
  Country: None (occurrence: None)
  Receive Date: 20080924
  Receipt Date: 20080911
  Transmission Date: 20090109
  Serious: Yes (Hospitalization, Other)
  Sender: FDA-Public Use
  Company Number: AU-PFIZER INC-2008061191

PATIENT
  Sex: Female

DRUGS (6)
  1. CHANTIX [Suspect]
     Indication: SMOKING CESSATION THERAPY
     Route: 048
     Dates: start: 20080627, end: 20080712
  2. BETA BLOCKING AGENTS [Concomitant]
     Indication: MIGRAINE
  3. ANTIHISTAMINES [Concomitant]
     Indication: RHINORRHOEA
  4. DERALIN [Concomitant]
     Route: 048
  5. ISCOVER [Concomitant]
     Route: 048
  6. LIPITOR [Concomitant]
     Route: 048

REACTIONS (4)
  - AGITATION [None]
  - POOR QUALITY SLEEP [None]
  - PSYCHOTIC DISORDER [None]
  - SUICIDAL IDEATION [None]
